FAERS Safety Report 17502463 (Version 4)
Quarter: 2020Q1

REPORT INFORMATION
  Report Type: Report from Study
  Country: JP (occurrence: JP)
  Receive Date: 20200305
  Receipt Date: 20200324
  Transmission Date: 20200409
  Serious: Yes (Hospitalization)
  Sender: FDA-Public Use
  Company Number: JP-CELGENEUS-JPN-20200300004

PATIENT
  Age: 82 Year
  Sex: Female
  Weight: 59.3 kg

DRUGS (80)
  1. ACICLOVIR [Concomitant]
     Active Substance: ACYCLOVIR
     Indication: ANTIVIRAL PROPHYLAXIS
     Dosage: 200 MILLIGRAM
     Route: 048
     Dates: start: 20170411, end: 20170530
  2. POTASSIUM CHLORIDE. [Concomitant]
     Active Substance: POTASSIUM CHLORIDE
     Dosage: 1200 MILLIGRAM
     Route: 048
     Dates: start: 20171224, end: 20171227
  3. WARFARIN POTASSIUM [Concomitant]
     Active Substance: WARFARIN POTASSIUM
     Dosage: 3 MILLIGRAM
     Route: 048
     Dates: start: 20170713, end: 20170713
  4. DEXAMETHASONE ORAL [Suspect]
     Active Substance: DEXAMETHASONE
     Indication: PLASMA CELL MYELOMA
     Dosage: 10 MILLIGRAM
     Route: 048
     Dates: start: 20170411, end: 201704
  5. CC-4047 [Suspect]
     Active Substance: POMALIDOMIDE
     Route: 048
     Dates: start: 2017, end: 2020
  6. BORTEZOMIB. [Suspect]
     Active Substance: BORTEZOMIB
     Dosage: 1 MILLIGRAM/SQ. METER
     Route: 058
     Dates: start: 20180117, end: 20180117
  7. ACICLOVIR [Concomitant]
     Active Substance: ACYCLOVIR
     Route: 048
     Dates: start: 20170531, end: 20191008
  8. ASPIRIN. [Concomitant]
     Active Substance: ASPIRIN
     Indication: THROMBOSIS PROPHYLAXIS
     Dosage: 100 MILLIGRAM
     Route: 048
     Dates: start: 20120612, end: 20170712
  9. LEVOFLOXACIN HEMIHYDRATE [Concomitant]
     Active Substance: LEVOFLOXACIN
     Route: 048
     Dates: start: 20190525, end: 20190527
  10. CALCIUM L-ASPARTATE HYDRATE [Concomitant]
     Active Substance: ASPARTIC ACID
     Dosage: 400 MILLIGRAM
     Route: 048
     Dates: start: 20170628, end: 20170630
  11. POTASSIUM CHLORIDE. [Concomitant]
     Active Substance: POTASSIUM CHLORIDE
     Dosage: 1800 MILLIGRAM
     Route: 048
     Dates: start: 20171122, end: 20171128
  12. POTASSIUM CHLORIDE. [Concomitant]
     Active Substance: POTASSIUM CHLORIDE
     Dosage: 1200 MILLIGRAM
     Route: 048
     Dates: start: 20180214, end: 20180619
  13. PEGFILGRASTIM [Concomitant]
     Active Substance: PEGFILGRASTIM
     Dosage: 3.6 MILLIGRAM
     Route: 058
     Dates: start: 20180627, end: 20180627
  14. EDOXABAN TOSILATE HYDRATE [Concomitant]
     Active Substance: EDOXABAN TOSYLATE
     Dosage: 15 MILLIGRAM
     Route: 048
     Dates: start: 20180117
  15. FREEZE-DRIED PH4 TREATED HUMAN IMMUNOGLOBULIN [Concomitant]
     Dosage: 5 GRAM
     Route: 041
     Dates: start: 20180328, end: 20180328
  16. EBRANTIL [Concomitant]
     Active Substance: URAPIDIL
     Indication: DYSURIA
     Dosage: 15 MILLIGRAM
     Route: 048
     Dates: start: 20180208, end: 20180208
  17. CC-4047 [Suspect]
     Active Substance: POMALIDOMIDE
     Dosage: 3 MILLIGRAM
     Route: 048
     Dates: start: 20200219, end: 20200226
  18. FILGRASTIM [Concomitant]
     Active Substance: FILGRASTIM
     Indication: NEUTROPENIA
     Dosage: 75 MICROGRAM
     Route: 058
     Dates: start: 20170502, end: 20170502
  19. LEVOFLOXACIN HEMIHYDRATE [Concomitant]
     Active Substance: LEVOFLOXACIN
     Indication: INFECTION PROPHYLAXIS
     Route: 048
     Dates: start: 20170411, end: 20170707
  20. LEVOFLOXACIN HEMIHYDRATE [Concomitant]
     Active Substance: LEVOFLOXACIN
     Indication: INFLUENZA
     Route: 048
     Dates: start: 20170710, end: 20171229
  21. LEVOFLOXACIN HEMIHYDRATE [Concomitant]
     Active Substance: LEVOFLOXACIN
     Dosage: 250 MILLIGRAM
     Route: 048
     Dates: start: 20200226, end: 20200228
  22. MEROPENEM HYDRATE [Concomitant]
     Active Substance: MEROPENEM
     Indication: BRONCHITIS
     Dosage: 0.5 GRAM
     Route: 041
     Dates: start: 20170707, end: 20170707
  23. POTASSIUM CHLORIDE. [Concomitant]
     Active Substance: POTASSIUM CHLORIDE
     Indication: HYPOKALAEMIA
     Dosage: 3600 MILLIGRAM
     Route: 048
     Dates: start: 20170807, end: 20170810
  24. POTASSIUM CHLORIDE. [Concomitant]
     Active Substance: POTASSIUM CHLORIDE
     Indication: PROPHYLAXIS
     Dosage: 1800 MILLIGRAM
     Route: 048
     Dates: start: 20170919, end: 20170922
  25. ACETAMINOPHEN. [Concomitant]
     Active Substance: ACETAMINOPHEN
     Indication: INFLUENZA
     Dosage: 500 MILLIGRAM
     Route: 048
     Dates: start: 20180328, end: 20180328
  26. ACETAMINOPHEN. [Concomitant]
     Active Substance: ACETAMINOPHEN
     Route: 048
     Dates: start: 20190522, end: 20190527
  27. SOLDEM 3 [Concomitant]
     Dosage: 1000 MILLILITER
     Route: 041
     Dates: start: 20180201, end: 20180203
  28. DEXAMETHASONE ORAL [Suspect]
     Active Substance: DEXAMETHASONE
     Dosage: 6 MILLIGRAM
     Route: 048
     Dates: start: 20170418, end: 20170419
  29. DEXAMETHASONE ORAL [Suspect]
     Active Substance: DEXAMETHASONE
     Dosage: 6 MILLIGRAM
     Route: 048
     Dates: start: 20170421, end: 20170422
  30. DEXAMETHASONE ORAL [Suspect]
     Active Substance: DEXAMETHASONE
     Route: 048
     Dates: start: 2017, end: 2020
  31. DEXAMETHASONE ORAL [Suspect]
     Active Substance: DEXAMETHASONE
     Dosage: 4 MILLIGRAM
     Route: 048
     Dates: start: 20200219, end: 20200220
  32. FILGRASTIM [Concomitant]
     Active Substance: FILGRASTIM
     Indication: PROPHYLAXIS
     Dosage: 75 MICROGRAM
     Route: 058
     Dates: start: 20170509, end: 20170509
  33. FILGRASTIM [Concomitant]
     Active Substance: FILGRASTIM
     Dosage: 75 MICROGRAM
     Route: 058
     Dates: start: 20170627, end: 20170627
  34. ACICLOVIR [Concomitant]
     Active Substance: ACYCLOVIR
     Route: 048
  35. POTASSIUM CHLORIDE. [Concomitant]
     Active Substance: POTASSIUM CHLORIDE
     Dosage: 1200 MILLIGRAM
     Route: 048
     Dates: start: 20180102, end: 20180104
  36. ACETAMINOPHEN. [Concomitant]
     Active Substance: ACETAMINOPHEN
     Indication: INFECTION PROPHYLAXIS
     Dosage: 500 MILLIGRAM
     Route: 048
     Dates: start: 20180228, end: 20180228
  37. EDOXABAN TOSILATE HYDRATE [Concomitant]
     Active Substance: EDOXABAN TOSYLATE
     Indication: VENOUS THROMBOSIS LIMB
     Dosage: 30 MILLIGRAM
     Route: 048
     Dates: start: 20170715, end: 20180116
  38. OSELTAMIVIR PHOSPHATE. [Concomitant]
     Active Substance: OSELTAMIVIR PHOSPHATE
     Indication: INFLUENZA
     Dosage: 75 MILLIGRAM
     Route: 048
     Dates: start: 20171225, end: 20171225
  39. TAZOPIPE COMBINATION [Concomitant]
     Indication: DYSPNOEA
     Dosage: 9 GRAM
     Route: 041
     Dates: start: 20180131, end: 20180209
  40. EBRANTIL [Concomitant]
     Active Substance: URAPIDIL
     Dosage: 30 MILLIGRAM
     Route: 048
     Dates: start: 20180209
  41. FILGRASTIM [Concomitant]
     Active Substance: FILGRASTIM
     Dosage: 75 MICROGRAM
     Route: 058
     Dates: start: 20170822, end: 20170822
  42. FILGRASTIM [Concomitant]
     Active Substance: FILGRASTIM
     Dosage: 75 MICROGRAM
     Route: 058
     Dates: start: 20180323, end: 20180323
  43. LEVOFLOXACIN HEMIHYDRATE [Concomitant]
     Active Substance: LEVOFLOXACIN
     Indication: BRONCHITIS
     Dosage: 500 MILLIGRAM
     Route: 048
     Dates: start: 20190522, end: 20190522
  44. FLUCONAZOLE. [Concomitant]
     Active Substance: FLUCONAZOLE
     Route: 048
     Dates: start: 20170531
  45. FAMOTIDINE. [Concomitant]
     Active Substance: FAMOTIDINE
     Indication: GASTRITIS PROPHYLAXIS
     Dosage: 40 MILLIGRAM
     Route: 048
     Dates: start: 20120612
  46. POTASSIUM CHLORIDE. [Concomitant]
     Active Substance: POTASSIUM CHLORIDE
     Dosage: 1200 MILLIGRAM
     Route: 048
     Dates: start: 20171115, end: 20171121
  47. POTASSIUM CHLORIDE. [Concomitant]
     Active Substance: POTASSIUM CHLORIDE
     Dosage: 600 MILLIGRAM
     Route: 048
     Dates: start: 20180620, end: 20180702
  48. PEGFILGRASTIM [Concomitant]
     Active Substance: PEGFILGRASTIM
     Indication: PROPHYLAXIS
     Dosage: 3.6 MILLIGRAM
     Route: 058
     Dates: start: 20170912, end: 20170912
  49. KETOPROFEN. [Concomitant]
     Active Substance: KETOPROFEN
     Indication: OSTEOARTHRITIS
     Route: 061
     Dates: start: 20171013
  50. TAZOPIPE COMBINATION [Concomitant]
     Indication: INFLUENZA
     Dosage: 2.25 GRAM
     Route: 041
     Dates: start: 20171229, end: 20171229
  51. SOLDEM 3 [Concomitant]
     Indication: URINARY TRACT INFECTION
     Dosage: 500 MILLILITER
     Route: 041
     Dates: start: 20180131, end: 20180131
  52. CC-4047 [Suspect]
     Active Substance: POMALIDOMIDE
     Indication: PLASMA CELL MYELOMA
     Dosage: 4 MILLIGRAM
     Route: 048
     Dates: start: 20170411, end: 20170424
  53. FLUCONAZOLE. [Concomitant]
     Active Substance: FLUCONAZOLE
     Indication: INFECTION PROPHYLAXIS
     Route: 048
     Dates: start: 20120808, end: 20170530
  54. POTASSIUM CHLORIDE. [Concomitant]
     Active Substance: POTASSIUM CHLORIDE
     Dosage: 1800 MILLIGRAM
     Route: 048
     Dates: start: 20180110, end: 20180116
  55. WARFARIN POTASSIUM [Concomitant]
     Active Substance: WARFARIN POTASSIUM
     Indication: VENOUS THROMBOSIS LIMB
     Dosage: 2 MILLIGRAM
     Route: 048
     Dates: start: 20170712, end: 20170712
  56. OSELTAMIVIR PHOSPHATE. [Concomitant]
     Active Substance: OSELTAMIVIR PHOSPHATE
     Dosage: 150 MILLIGRAM
     Route: 048
     Dates: start: 20171228, end: 20171229
  57. FREEZE-DRIED PH4 TREATED HUMAN IMMUNOGLOBULIN [Concomitant]
     Indication: INFECTION PROPHYLAXIS
     Dosage: 10 GRAM
     Route: 041
     Dates: start: 20171230, end: 20171230
  58. FREEZE-DRIED PH4 TREATED HUMAN IMMUNOGLOBULIN [Concomitant]
     Dosage: 5 GRAM
     Route: 041
     Dates: start: 20180228, end: 20180228
  59. L-CARBOCYSTEINE [Concomitant]
     Active Substance: CARBOCYSTEINE
     Indication: INFLUENZA
     Dosage: 1000 MILLIGRAM
     Route: 048
     Dates: start: 20171230, end: 20171230
  60. SOLACET F [Concomitant]
     Active Substance: CALCIUM CHLORIDE\POTASSIUM CHLORIDE\SODIUM ACETATE\SODIUM CHLORIDE
     Indication: URINARY TRACT INFECTION
     Dosage: 1000 MILLILITER
     Route: 041
     Dates: start: 20180130, end: 20180131
  61. BORTEZOMIB. [Suspect]
     Active Substance: BORTEZOMIB
     Indication: PLASMA CELL MYELOMA
     Dosage: 1.3 MILLIGRAM/SQ. METER
     Route: 058
     Dates: start: 20170411, end: 20170418
  62. FILGRASTIM [Concomitant]
     Active Substance: FILGRASTIM
     Dosage: 75 MICROGRAM
     Route: 058
     Dates: start: 20170530, end: 20170530
  63. FILGRASTIM [Concomitant]
     Active Substance: FILGRASTIM
     Dosage: 75 MICROGRAM
     Route: 058
     Dates: start: 20170620, end: 20170620
  64. MEROPENEM HYDRATE [Concomitant]
     Active Substance: MEROPENEM
     Dosage: 1 GRAM
     Route: 041
     Dates: start: 20170708, end: 20170716
  65. CALCIUM L-ASPARTATE HYDRATE [Concomitant]
     Active Substance: ASPARTIC ACID
     Indication: HYPOCALCAEMIA
     Dosage: 400 MILLIGRAM
     Route: 048
     Dates: start: 20170531, end: 20170602
  66. CALCIUM L-ASPARTATE HYDRATE [Concomitant]
     Active Substance: ASPARTIC ACID
     Dosage: 400 MILLIGRAM
     Route: 048
     Dates: start: 20170708
  67. POTASSIUM CHLORIDE. [Concomitant]
     Active Substance: POTASSIUM CHLORIDE
     Dosage: 1200 MILLIGRAM
     Route: 048
     Dates: start: 20180117, end: 20180213
  68. POTASSIUM CHLORIDE. [Concomitant]
     Active Substance: POTASSIUM CHLORIDE
     Dosage: 1600 MILLIGRAM
     Route: 048
     Dates: start: 20180703
  69. PEGFILGRASTIM [Concomitant]
     Active Substance: PEGFILGRASTIM
     Dosage: 3.6 MILLIGRAM
     Route: 058
     Dates: start: 20180117, end: 20180117
  70. TULOBUTEROL HYDROCHLORIDE [Concomitant]
     Active Substance: TULOBUTEROL HYDROCHLORIDE
     Indication: BRONCHITIS
     Dosage: 2 MILLIGRAM
     Route: 061
     Dates: start: 20170714, end: 20170717
  71. TULOBUTEROL HYDROCHLORIDE [Concomitant]
     Active Substance: TULOBUTEROL HYDROCHLORIDE
     Indication: PROPHYLAXIS
     Dosage: 2 MILLIGRAM
     Route: 061
     Dates: start: 20170717, end: 20170718
  72. TAZOPIPE COMBINATION [Concomitant]
     Indication: URINARY TRACT INFECTION
     Dosage: 9 GRAM
     Route: 041
     Dates: start: 20171230, end: 20180106
  73. TAZOPIPE COMBINATION [Concomitant]
     Dosage: 13.5 GRAM
     Route: 041
     Dates: start: 20200229, end: 20200307
  74. L-CARBOCYSTEINE [Concomitant]
     Active Substance: CARBOCYSTEINE
     Indication: PROPHYLAXIS
     Dosage: 1500 MILLIGRAM
     Route: 048
     Dates: start: 20171231, end: 20180110
  75. FILGRASTIM [Concomitant]
     Active Substance: FILGRASTIM
     Dosage: 75 MICROGRAM
     Route: 058
     Dates: start: 20171226, end: 20171226
  76. FILGRASTIM [Concomitant]
     Active Substance: FILGRASTIM
     Dosage: 75 MICROGRAM
     Route: 058
     Dates: start: 20180131, end: 20180201
  77. PEGFILGRASTIM [Concomitant]
     Active Substance: PEGFILGRASTIM
     Dosage: 3.6 MILLIGRAM
     Route: 058
     Dates: start: 20171115, end: 20171115
  78. ACETAMINOPHEN. [Concomitant]
     Active Substance: ACETAMINOPHEN
     Indication: OSTEOARTHRITIS
     Dosage: 1000 MILLIGRAM
     Route: 048
     Dates: start: 20171003, end: 20180110
  79. PERAMIVIR HYDRATE [Concomitant]
     Indication: INFLUENZA
     Dosage: 200 MILLIGRAM
     Route: 041
     Dates: start: 20171229, end: 20171231
  80. L-CARBOCYSTEINE [Concomitant]
     Active Substance: CARBOCYSTEINE
     Dosage: 1500 MILLIGRAM
     Route: 048
     Dates: start: 20180111

REACTIONS (2)
  - Bronchitis [Not Recovered/Not Resolved]
  - Dyspnoea [Recovered/Resolved]

NARRATIVE: CASE EVENT DATE: 20200226
